FAERS Safety Report 6710255-6 (Version None)
Quarter: 2010Q2

REPORT INFORMATION
  Report Type: 
  Country: None (occurrence: None)
  Receive Date: 20100504
  Receipt Date: 20100422
  Transmission Date: 20101027
  Serious: Yes (Other)
  Sender: FDA-Public Use
  Company Number: FR-GENZYME-THYR-1000291

PATIENT
  Sex: Female
  Weight: 73 kg

DRUGS (2)
  1. THYROGEN [Suspect]
     Indication: THERAPEUTIC PROCEDURE
     Dosage: 0.9 MG, QD
     Route: 030
     Dates: start: 20100410, end: 20100411
  2. LEVOTHYROX [Concomitant]
     Indication: SUPPLEMENTATION THERAPY
     Dosage: 125 MCG, QD
     Route: 048
     Dates: start: 20100118

REACTIONS (3)
  - ABORTION SPONTANEOUS [None]
  - DRUG EXPOSURE DURING PREGNANCY [None]
  - PREGNANCY [None]
